FAERS Safety Report 7653577 (Version 5)
Quarter: 2013Q1

REPORT INFORMATION
  Report Type: Spontaneous
  Country: US (occurrence: US)
  Receive Date: 20101102
  Receipt Date: 20130318
  Transmission Date: 20140127
  Serious: Yes (Hospitalization)
  Sender: FDA-Public Use
  Company Number: US-BAYER-201038914NA

PATIENT
  Age: 16 Year
  Sex: Female
  Weight: 72.56 kg

DRUGS (10)
  1. YAZ [Suspect]
     Indication: CONTRACEPTION
     Dosage: UNK
     Route: 048
     Dates: start: 200904, end: 200908
  2. YAZ [Suspect]
     Indication: ACNE
  3. YAZ [Suspect]
     Indication: PREMENSTRUAL SYNDROME
  4. ANTIBIOTICS [Concomitant]
  5. TYLENOL [PARACETAMOL] [Concomitant]
     Indication: HEADACHE
     Dosage: UNK UNK, PRN
  6. VITAMINS [Concomitant]
     Dosage: UNK UNK, QD
  7. PEPCID [Concomitant]
  8. PLAQUENIL [Concomitant]
  9. FOLIC ACID [Concomitant]
  10. PREDNISONE [Concomitant]

REACTIONS (8)
  - Cerebrovascular accident [Unknown]
  - Hemiparesis [Unknown]
  - Paralysis [Unknown]
  - Speech disorder [Unknown]
  - Asthenia [Unknown]
  - Eye disorder [Unknown]
  - Lip disorder [Unknown]
  - Malaise [Unknown]
